FAERS Safety Report 6162684-X (Version None)
Quarter: 2009Q2

REPORT INFORMATION
  Report Type: 
  Country: None (occurrence: None)
  Receive Date: 20090417
  Receipt Date: 20090407
  Transmission Date: 20091009
  Serious: Yes (Hospitalization)
  Sender: FDA-Public Use
  Company Number: THQ2009A00749

PATIENT
  Age: 69 Year
  Sex: Female

DRUGS (15)
  1. LANSOPRAZOLE [Suspect]
     Indication: GASTRITIS
     Dosage: 30 MG (30 MG,2 IN 1 D) PER ORAL ; PER ORAL
     Route: 048
     Dates: start: 20061222, end: 20070924
  2. LANSOPRAZOLE [Suspect]
     Indication: GASTRITIS
     Dosage: 30 MG (30 MG,2 IN 1 D) PER ORAL ; PER ORAL
     Route: 048
     Dates: start: 20090101
  3. ACTONEL [Concomitant]
  4. NAUDICELLE PLUS(TABLETS) [Concomitant]
  5. NU-SEALS ASPIRIN (ACETYLSALICYLIC ACID) [Concomitant]
  6. ANXICALM (DIAZEPAM) [Concomitant]
  7. BUPRENORPHINE HCL [Concomitant]
  8. CRESTOR [Concomitant]
  9. FLUCONAZOLE [Concomitant]
  10. AMLODIPINE BESYLATE [Concomitant]
  11. DEXKETOPROFEN [Concomitant]
  12. SERETIDE [Concomitant]
  13. SINGULAIR [Concomitant]
  14. SOLPADOL (PANADEINE CO) (TABLETS) [Concomitant]
  15. SPIRIVA [Concomitant]

REACTIONS (5)
  - CONDITION AGGRAVATED [None]
  - DIARRHOEA [None]
  - PHOBIA [None]
  - PROTEIN-LOSING GASTROENTEROPATHY [None]
  - WEIGHT DECREASED [None]
